FAERS Safety Report 24858793 (Version 1)
Quarter: 2025Q1

REPORT INFORMATION
  Report Type: Spontaneous
  Country: US (occurrence: US)
  Receive Date: 20250118
  Receipt Date: 20250118
  Transmission Date: 20250409
  Serious: No
  Sender: AMGEN
  Company Number: US-AMGEN-USASP2025007013

PATIENT
  Age: 60 Year
  Sex: Female

DRUGS (4)
  1. PREDNISONE [Suspect]
     Active Substance: PREDNISONE
     Indication: Scleritis
     Dosage: 5 MILLIGRAM, QD
     Route: 048
  2. ADALIMUMAB [Suspect]
     Active Substance: ADALIMUMAB
     Indication: Scleritis
     Route: 065
  3. CORTICOTROPIN [Concomitant]
     Active Substance: CORTICOTROPIN
     Indication: Scleritis
     Dosage: 80 UNITS, 3 TIMES/WK
     Route: 065
  4. CORTICOTROPIN [Concomitant]
     Active Substance: CORTICOTROPIN
     Dosage: 80 UNITS, 2 TIMES/WK
     Route: 065

REACTIONS (2)
  - Insomnia [Unknown]
  - Off label use [Unknown]
